APPROVED DRUG PRODUCT: VERAPAMIL HYDROCHLORIDE
Active Ingredient: VERAPAMIL HYDROCHLORIDE
Strength: 40MG
Dosage Form/Route: TABLET;ORAL
Application: A073168 | Product #001
Applicant: CHARTWELL RX SCIENCES LLC
Approved: Jul 31, 1992 | RLD: No | RS: No | Type: DISCN